FAERS Safety Report 7967026-2 (Version None)
Quarter: 2011Q4

REPORT INFORMATION
  Report Type: 
  Country: None (occurrence: None)
  Receive Date: 20111209
  Receipt Date: 20111128
  Transmission Date: 20120403
  Serious: Yes (Other)
  Sender: FDA-Public Use
  Company Number: JP-EISAI INC-E7389-01355-SPO-JP

PATIENT
  Sex: Female
  Weight: 57 kg

DRUGS (15)
  1. DECADRON [Concomitant]
  2. PRIMPERAN TAB [Concomitant]
     Indication: PROPHYLAXIS
     Route: 048
     Dates: start: 20110725
  3. MAGNESIUM OXIDE [Concomitant]
     Indication: PROPHYLAXIS
     Route: 048
  4. HALAVEN [Suspect]
     Indication: BREAST CANCER RECURRENT
     Route: 041
     Dates: start: 20110725, end: 20110725
  5. PROMACTA [Concomitant]
     Indication: PROPHYLAXIS
     Route: 048
     Dates: start: 20110725
  6. RAMELTEON [Concomitant]
     Indication: PROPHYLAXIS
     Route: 048
     Dates: start: 20110725
  7. HALAVEN [Suspect]
     Indication: METASTASES TO LIVER
     Route: 041
     Dates: start: 20110815
  8. CIPROFLOXACIN HCL [Concomitant]
     Indication: PROPHYLAXIS
     Route: 048
     Dates: start: 20110729
  9. ACETAMINOPHEN [Concomitant]
     Indication: PROPHYLAXIS
     Route: 048
     Dates: start: 20110729
  10. ISODINE GARGLE [Concomitant]
     Indication: THERAPEUTIC GARGLE
     Route: 048
     Dates: start: 20110725
  11. DECADRON [Concomitant]
     Indication: PROPHYLAXIS
     Route: 048
     Dates: start: 20110725
  12. URSO 250 [Concomitant]
     Indication: METASTASES TO LIVER
     Route: 048
  13. MUCOSTA [Concomitant]
     Indication: PROPHYLAXIS
     Route: 048
     Dates: start: 20110725
  14. MAGMITT [Concomitant]
     Indication: PROPHYLAXIS
     Route: 048
     Dates: start: 20110725
  15. NEO-MINOPHAGEN C [Concomitant]
     Indication: METASTASES TO LIVER
     Route: 041

REACTIONS (2)
  - FEBRILE NEUTROPENIA [None]
  - HEPATIC FUNCTION ABNORMAL [None]
